FAERS Safety Report 25590885 (Version 1)
Quarter: 2025Q3

REPORT INFORMATION
  Report Type: Spontaneous
  Country: CN (occurrence: CN)
  Receive Date: 20250722
  Receipt Date: 20250722
  Transmission Date: 20251021
  Serious: Yes (Life-Threatening, Other)
  Sender: BAYER HEALTHCARE PHARMACEUTICALS INC.
  Company Number: CN-BAYER-2025A097197

PATIENT
  Age: 71 Year
  Sex: Male
  Weight: 55 kg

DRUGS (4)
  1. GLUCOBAY [Interacting]
     Active Substance: ACARBOSE
     Indication: Diabetes mellitus
     Dosage: 50 MG, TID, AT MEAL
     Route: 048
     Dates: start: 20250711, end: 20250718
  2. INSULIN ASPART [Interacting]
     Active Substance: INSULIN ASPART
     Indication: Diabetes mellitus
     Dosage: 10 U, TID
     Route: 058
     Dates: start: 20250711, end: 20250718
  3. INSULIN DEGLUDEC [Interacting]
     Active Substance: INSULIN DEGLUDEC
     Indication: Diabetes mellitus
     Dosage: 14 U, QD
     Route: 058
     Dates: start: 20250711, end: 20250715
  4. PIOGLITAZONE HYDROCHLORIDE AND METFORMIN HYDROCHLORIDE [Interacting]
     Active Substance: METFORMIN HYDROCHLORIDE\PIOGLITAZONE HYDROCHLORIDE
     Indication: Diabetes mellitus
     Dosage: 1 DF, QD
     Route: 048
     Dates: start: 20250711, end: 20250715

REACTIONS (3)
  - Hypoglycaemia [Recovering/Resolving]
  - Chest discomfort [Recovering/Resolving]
  - Cold sweat [Recovering/Resolving]

NARRATIVE: CASE EVENT DATE: 20250715
